FAERS Safety Report 7323537-4 (Version None)
Quarter: 2011Q1

REPORT INFORMATION
  Report Type: 
  Country: None (occurrence: None)
  Receive Date: 20110301
  Receipt Date: 20110216
  Transmission Date: 20110831
  Serious: Yes (Death, Hospitalization)
  Sender: FDA-Public Use
  Company Number: DE-ROCHE-755240

PATIENT
  Sex: Female
  Weight: 57 kg

DRUGS (5)
  1. TYVERB [Concomitant]
     Dates: start: 20100401
  2. HERCEPTIN [Suspect]
     Dosage: IN COMBINATION WITH CHEMOTHERAPY, LOADING DOSAGE
     Route: 042
     Dates: start: 20101215, end: 20101215
  3. NAVELBINE [Concomitant]
     Route: 042
     Dates: start: 20101214, end: 20101214
  4. XELODA [Concomitant]
     Dates: start: 20100401
  5. HERCEPTIN [Suspect]
     Route: 042
     Dates: start: 20090501, end: 20100301

REACTIONS (2)
  - HEPATIC FAILURE [None]
  - ANAPHYLACTIC SHOCK [None]
